FAERS Safety Report 24383081 (Version 1)
Quarter: 2024Q4

REPORT INFORMATION
  Report Type: Spontaneous
  Country: US (occurrence: US)
  Receive Date: 20241001
  Receipt Date: 20241001
  Transmission Date: 20250115
  Serious: Yes (Hospitalization)
  Sender: ROCHE
  Company Number: US-ROCHE-10000088804

PATIENT
  Age: 76 Year
  Sex: Male
  Weight: 81 kg

DRUGS (8)
  1. RITUXIMAB [Suspect]
     Active Substance: RITUXIMAB
     Indication: Granuloma
     Route: 065
  2. RITUXIMAB [Suspect]
     Active Substance: RITUXIMAB
     Indication: Vasculitis
  3. PREDNISONE [Suspect]
     Active Substance: PREDNISONE
     Indication: Granuloma
     Route: 048
  4. PREDNISONE [Suspect]
     Active Substance: PREDNISONE
     Indication: Vasculitis
  5. ATOVAQUONE [Concomitant]
     Active Substance: ATOVAQUONE
     Indication: Antifungal prophylaxis
     Route: 048
  6. OXYGEN [Concomitant]
     Active Substance: OXYGEN
     Dosage: INCREASED TO 3 L/MIN NC
  7. OXYGEN [Concomitant]
     Active Substance: OXYGEN
     Dosage: INCREASED TO 6 L/MIN NC
  8. DAPSONE [Concomitant]
     Active Substance: DAPSONE
     Indication: Ventricular tachycardia

REACTIONS (1)
  - Pneumocystis jirovecii pneumonia [Recovered/Resolved]
